FAERS Safety Report 6900014-3 (Version None)
Quarter: 2010Q3

REPORT INFORMATION
  Report Type: 
  Country: None (occurrence: None)
  Receive Date: 20100803
  Receipt Date: 20100722
  Transmission Date: 20110219
  Serious: Yes (Other)
  Sender: FDA-Public Use
  Company Number: US-SANOFI-AVENTIS-2010SA035478

PATIENT
  Age: 79 Year
  Sex: Female
  Weight: 44 kg

DRUGS (11)
  1. LANTUS [Suspect]
     Dosage: DOSE:20 UNIT(S)
     Route: 058
  2. OPTICLICK [Suspect]
     Indication: TYPE 2 DIABETES MELLITUS
  3. SYNTHROID [Concomitant]
     Indication: THYROID DISORDER
  4. ASPIRIN [Concomitant]
  5. SIMVASTATIN [Concomitant]
  6. COZAAR [Concomitant]
  7. EVISTA [Concomitant]
     Indication: HORMONE THERAPY
  8. MULTAQ [Concomitant]
     Indication: HEART RATE
  9. APIDRA [Concomitant]
     Dosage: DOSE:3 UNIT(S)
  10. HYDROCHLOROTHIAZIDE [Concomitant]
     Indication: BLOOD PRESSURE
  11. PLETAL [Concomitant]

REACTIONS (3)
  - PNEUMONIA [None]
  - SMALL CELL LUNG CANCER STAGE UNSPECIFIED [None]
  - VISION BLURRED [None]
